FAERS Safety Report 13108631 (Version 1)
Quarter: 2017Q1

REPORT INFORMATION
  Report Type: Report from Study
  Country: US (occurrence: US)
  Receive Date: 20170112
  Receipt Date: 20170112
  Transmission Date: 20170428
  Serious: Yes (Hospitalization)
  Sender: FDA-Public Use
  Company Number: US-OTSUKA-2017_000199

PATIENT
  Age: 51 Year
  Sex: Female

DRUGS (3)
  1. TOLVAPTAN [Suspect]
     Active Substance: TOLVAPTAN
     Indication: INAPPROPRIATE ANTIDIURETIC HORMONE SECRETION
     Dosage: 30 MG, QD (DOSAGE STRENGTH: 30 MG)
     Route: 048
     Dates: start: 201607, end: 201612
  2. TOLVAPTAN [Suspect]
     Active Substance: TOLVAPTAN
     Dosage: 60 MG (DOSAGE STRENGTH: 30 MG), UNK
     Route: 065
     Dates: start: 201612
  3. TOLVAPTAN [Suspect]
     Active Substance: TOLVAPTAN
     Dosage: DOSE ABOVE 30 MG (DOSAGE STRENGTH: 30 MG)
     Route: 065

REACTIONS (3)
  - Hospitalisation [Unknown]
  - Off label use [Unknown]
  - Incorrect drug administration duration [Unknown]

NARRATIVE: CASE EVENT DATE: 201607
